FAERS Safety Report 5247169-7 (Version None)
Quarter: 2007Q1

REPORT INFORMATION
  Report Type: 
  Country: None (occurrence: None)
  Receive Date: 20070221
  Receipt Date: 20070129
  Transmission Date: 20070707
  Serious: Yes (Hospitalization)
  Sender: FDA-Public Use
  Company Number: 236566

PATIENT
  Age: 74 Year
  Sex: Female
  Weight: 64 kg

DRUGS (12)
  1. AVASTIN [Suspect]
     Indication: COLORECTAL CANCER METASTATIC
     Dosage: 320 MG, Q2W, INTRAVENOUS
     Route: 042
     Dates: start: 20061020, end: 20061114
  2. CAPECITABINE(CAPECITABINE) [Suspect]
     Indication: COLORECTAL CANCER METASTATIC
     Dosage: 2500 MG, BID, ORAL
     Route: 048
     Dates: start: 20061020, end: 20061114
  3. OXALIPLATIN [Suspect]
     Indication: COLORECTAL CANCER METASTATIC
     Dosage: 145 MG, Q2W, INTRAVENOUS
     Route: 042
     Dates: start: 20061020, end: 20061114
  4. NIACOR (NIACIN) [Concomitant]
  5. EFFEXOR [Concomitant]
  6. DOXEPIN (DOXEPIN HYDROCHLORIDE) [Concomitant]
  7. VICODIN [Concomitant]
  8. AMBIEN [Concomitant]
  9. HYDROCHLOROTHIAZIDE WITH TRIAMTERENE (HYDROCHLOROTHIAZIDE, TRIAMTERENE [Concomitant]
  10. LORAZEPAM [Concomitant]
  11. KYTRIL [Concomitant]
  12. PHENERGAN (PROMETHAZINE HYDROCHLORIDE) [Concomitant]

REACTIONS (5)
  - ASTHENIA [None]
  - DIARRHOEA [None]
  - ENTERITIS [None]
  - HYPOVOLAEMIA [None]
  - NAUSEA [None]
